FAERS Safety Report 24184433 (Version 1)
Quarter: 2024Q3

REPORT INFORMATION
  Report Type: Spontaneous
  Country: US (occurrence: US)
  Receive Date: 20240807
  Receipt Date: 20240807
  Transmission Date: 20241017
  Serious: No
  Sender: PFIZER
  Company Number: US-PFIZER INC-PV202400101914

PATIENT
  Age: 18 Year
  Sex: Female

DRUGS (2)
  1. LITFULO [Suspect]
     Active Substance: RITLECITINIB TOSYLATE
     Indication: Alopecia universalis
     Dosage: 50 MG, DAILY (WITH FOOD AND WATER)
     Route: 048
     Dates: start: 20230822
  2. OLUMIANT [Concomitant]
     Active Substance: BARICITINIB

REACTIONS (2)
  - Drug ineffective [Unknown]
  - Product dose omission issue [Unknown]
